FAERS Safety Report 4927939-2 (Version None)
Quarter: 2006Q1

REPORT INFORMATION
  Report Type: 
  Country: None (occurrence: None)
  Receive Date: 20060223
  Receipt Date: 20060210
  Transmission Date: 20060701
  Serious: No
  Sender: FDA-Public Use
  Company Number: 02100-JPN-06-0020

PATIENT
  Age: 53 Year
  Sex: Male

DRUGS (13)
  1. CILOSTAZOL [Suspect]
     Indication: SHUNT MALFUNCTION
     Dosage: 100 MG, ORAL
     Route: 048
     Dates: start: 20051120, end: 20051128
  2. HEPARIN SODIUM [Concomitant]
  3. CANDESARTAN CILEXETIL [Concomitant]
  4. NIFEDIPINE [Concomitant]
  5. DOXAZOSIN MESYLATE [Concomitant]
  6. METILDIGOXIN [Concomitant]
  7. SENNOSIDE [Concomitant]
  8. LANSOPRAZOLE [Concomitant]
  9. CALCITRIOL [Concomitant]
  10. TEPRENONE [Concomitant]
  11. CLOSTRIDIUM BUTYRICUM [Concomitant]
  12. PRECIPIATED CALCIUM CARBONATE [Concomitant]
  13. PILSICAINIDE HYDROCHLORIDE [Concomitant]

REACTIONS (6)
  - BLOOD PRESSURE DECREASED [None]
  - HAEMORRHAGE SUBCUTANEOUS [None]
  - INDURATION [None]
  - PUNCTURE SITE HAEMORRHAGE [None]
  - PUNCTURE SITE REACTION [None]
  - SUBCUTANEOUS NODULE [None]
